FAERS Safety Report 16982167 (Version 1)
Quarter: 2019Q4

REPORT INFORMATION
  Report Type: Spontaneous
  Country: US (occurrence: US)
  Receive Date: 20191101
  Receipt Date: 20191101
  Transmission Date: 20200122
  Serious: No
  Sender: FDA-Public Use
  Company Number: US-ASTRAZENECA-2019SF50255

PATIENT
  Sex: Male

DRUGS (1)
  1. PRILOSEC [Suspect]
     Active Substance: OMEPRAZOLE MAGNESIUM
     Route: 048

REACTIONS (3)
  - Gastrooesophageal reflux disease [Unknown]
  - Dyspepsia [Unknown]
  - Drug ineffective [Unknown]
